FAERS Safety Report 9304177 (Version 1)
Quarter: 2013Q2

REPORT INFORMATION
  Report Type: Spontaneous
  Country: MY (occurrence: MY)
  Receive Date: 20130522
  Receipt Date: 20130522
  Transmission Date: 20140414
  Serious: Yes (Hospitalization)
  Sender: FDA-Public Use
  Company Number: MY-ROXANE LABORATORIES, INC.-2013-RO-00820RO

PATIENT
  Age: 24 Year
  Sex: Female

DRUGS (4)
  1. AZATHIOPRINE [Suspect]
     Indication: AUTOIMMUNE HEPATITIS
     Dosage: 175 MG
  2. CYCLOSPORINE [Suspect]
     Indication: AUTOIMMUNE HEPATITIS
  3. IDARUBICIN [Suspect]
     Indication: ACUTE MYELOID LEUKAEMIA
  4. CYTARABINE [Suspect]
     Indication: ACUTE MYELOID LEUKAEMIA

REACTIONS (4)
  - Acute myeloid leukaemia [Unknown]
  - Sepsis [Unknown]
  - Respiratory failure [Unknown]
  - Hepatic failure [Unknown]
